FAERS Safety Report 6727403-4 (Version None)
Quarter: 2010Q2

REPORT INFORMATION
  Report Type: 
  Country: None (occurrence: None)
  Receive Date: 20100517
  Receipt Date: 20100511
  Transmission Date: 20101027
  Serious: Yes (Death)
  Sender: FDA-Public Use
  Company Number: KR-CELGENEUS-090-CCAZA-10032809

PATIENT
  Sex: Male

DRUGS (4)
  1. AZACITIDINE [Suspect]
     Indication: MULTIPLE MYELOMA
     Route: 058
     Dates: start: 20080229
  2. AZACITIDINE [Suspect]
     Route: 058
     Dates: start: 20080403, end: 20080409
  3. ITRACONAZOLE [Concomitant]
     Indication: PROPHYLAXIS
     Route: 048
     Dates: start: 20080225, end: 20080306
  4. PREPENEM [Concomitant]
     Indication: PROPHYLAXIS
     Route: 065
     Dates: start: 20080326, end: 20080409

REACTIONS (1)
  - CEREBRAL HAEMORRHAGE [None]
